FAERS Safety Report 5960212-2 (Version None)
Quarter: 2008Q4

REPORT INFORMATION
  Report Type: 
  Country: None (occurrence: None)
  Receive Date: 20081120
  Receipt Date: 20081114
  Transmission Date: 20090506
  Serious: Yes (Other)
  Sender: FDA-Public Use
  Company Number: GB-ASTRAZENECA-2008GB02179

PATIENT
  Age: 42 Year
  Sex: Female
  Weight: 112 kg

DRUGS (11)
  1. SYMBICORT [Suspect]
     Indication: ASTHMA
     Dosage: SYMBICORT 400/12, 2 PUFFS 12 TIMES A DAY
     Route: 055
     Dates: start: 20070504
  2. ALBUTEROL SULFATE [Suspect]
     Dosage: MANY PUFFS.
     Route: 055
  3. ALENDRONATE SODIUM [Concomitant]
     Route: 065
  4. CALCICHEW [Concomitant]
     Route: 065
  5. CLARITHROMYCIN [Concomitant]
     Route: 065
  6. LANSOPRAZOLE [Concomitant]
     Route: 065
  7. METFORMIN HCL [Concomitant]
     Route: 065
  8. PREDNISOLONE [Concomitant]
     Route: 065
  9. QVAR 40 [Concomitant]
     Route: 065
  10. REPAGLINIDE [Concomitant]
     Route: 065
  11. UNIPHYL [Concomitant]
     Route: 065

REACTIONS (4)
  - DRUG ADMINISTRATION ERROR [None]
  - HYPOKALAEMIA [None]
  - HYPOXIA [None]
  - OVERDOSE [None]
